FAERS Safety Report 6902413-2 (Version None)
Quarter: 2010Q3

REPORT INFORMATION
  Report Type: 
  Country: None (occurrence: None)
  Receive Date: 20100803
  Receipt Date: 20080519
  Transmission Date: 20110219
  Serious: No
  Sender: FDA-Public Use
  Company Number: US-PFIZER INC-2008043597

PATIENT
  Sex: Female
  Weight: 62.2 kg

DRUGS (5)
  1. LYRICA [Suspect]
     Indication: NEURALGIA
     Dates: start: 20080411
  2. CELEXA [Concomitant]
  3. TRILEPTAL [Concomitant]
  4. LORTAB [Concomitant]
  5. SOMA [Concomitant]

REACTIONS (4)
  - HUNGER [None]
  - HYPOAESTHESIA [None]
  - INSOMNIA [None]
  - WEIGHT INCREASED [None]
